FAERS Safety Report 21622732 (Version 1)
Quarter: 2022Q4

REPORT INFORMATION
  Report Type: Spontaneous
  Country: IT (occurrence: IT)
  Receive Date: 20221121
  Receipt Date: 20221121
  Transmission Date: 20230113
  Serious: Yes (Other)
  Sender: FDA-Public Use
  Company Number: None

PATIENT
  Sex: Male

DRUGS (6)
  1. RAMUCIRUMAB [Suspect]
     Active Substance: RAMUCIRUMAB
     Indication: Gastrointestinal adenocarcinoma
     Dosage: UNK UNK, CYCLICAL
     Route: 065
     Dates: start: 20200520, end: 20200805
  2. RAMIPRIL [Concomitant]
     Active Substance: RAMIPRIL
     Indication: Hypertension
     Dosage: UNK
     Route: 048
  3. LAMIVUDINE [Concomitant]
     Active Substance: LAMIVUDINE
     Indication: Hepatitis B surface antibody positive
     Dosage: UNK, UNKNOWN
  4. BISOPROLOL FUMARATE [Concomitant]
     Active Substance: BISOPROLOL FUMARATE
     Indication: Hypertension
     Dosage: UNK
  5. ORAMORPH SR SUSTAINED RELEASE [Concomitant]
     Active Substance: MORPHINE SULFATE
     Indication: Pain
     Dosage: UNK
  6. PACLITAXEL [Concomitant]
     Active Substance: PACLITAXEL
     Indication: Pain
     Dosage: UNK
     Dates: start: 20200520

REACTIONS (6)
  - Ventricular hypokinesia [Recovering/Resolving]
  - Cardiotoxicity [Recovering/Resolving]
  - Ventricular hypertrophy [Recovering/Resolving]
  - Cardiac failure [Recovering/Resolving]
  - Aortic dilatation [Recovering/Resolving]
  - Left atrial dilatation [Recovering/Resolving]

NARRATIVE: CASE EVENT DATE: 20200804
